FAERS Safety Report 9241915 (Version 1)
Quarter: 2013Q2

REPORT INFORMATION
  Report Type: Spontaneous
  Country: BR (occurrence: BR)
  Receive Date: 20130419
  Receipt Date: 20130419
  Transmission Date: 20140414
  Serious: Yes (Hospitalization)
  Sender: FDA-Public Use
  Company Number: BR-ROCHE-1215194

PATIENT
  Age: 74 Year
  Sex: Female
  Weight: 54 kg

DRUGS (6)
  1. MABTHERA [Suspect]
     Indication: NON-HODGKIN^S LYMPHOMA
     Route: 042
  2. PARACETAMOL [Concomitant]
     Route: 048
     Dates: start: 20130409
  3. ONDANSETRON [Concomitant]
     Route: 042
     Dates: start: 20130409
  4. RANITIDINE [Concomitant]
     Route: 042
     Dates: start: 20130409
  5. HYDROCORTISON [Concomitant]
     Route: 042
     Dates: start: 20130409
  6. STUGERON [Concomitant]
     Indication: LABYRINTHITIS
     Route: 048

REACTIONS (6)
  - Tremor [Recovered/Resolved]
  - Cyanosis [Recovered/Resolved]
  - Investigation abnormal [Recovered/Resolved]
  - Tachypnoea [Recovered/Resolved]
  - Tachycardia [Recovered/Resolved]
  - Pallor [Recovered/Resolved]
